FAERS Safety Report 7817236-X (Version None)
Quarter: 2011Q4

REPORT INFORMATION
  Report Type: 
  Country: None (occurrence: None)
  Receive Date: 20111017
  Receipt Date: 20111013
  Transmission Date: 20120403
  Serious: Yes (Death, Hospitalization, Other)
  Sender: FDA-Public Use
  Company Number: PHHY2011BR90827

PATIENT
  Sex: Male

DRUGS (5)
  1. PREDNISONE [Concomitant]
     Indication: CHRONIC OBSTRUCTIVE PULMONARY DISEASE
     Dosage: 1 TABLET IN THE MORNING AND HALF TABLET IN THE NIGHT
     Route: 048
  2. FORMOTEROL FUMARATE [Suspect]
     Dosage: 5 DF, QD
  3. FORMOTEROL FUMARATE [Suspect]
     Indication: CHRONIC OBSTRUCTIVE PULMONARY DISEASE
     Dosage: 3 DF, QD
  4. LUFTAL [Concomitant]
     Indication: ABDOMINAL DISTENSION
     Dosage: ONCE A DAY
     Route: 048
  5. LASIX [Concomitant]
     Indication: DYSURIA
     Dosage: 1 DF, QD
     Route: 048

REACTIONS (3)
  - NOSOCOMIAL INFECTION [None]
  - SECRETION DISCHARGE [None]
  - DYSPNOEA [None]
